FAERS Safety Report 5367972-2 (Version None)
Quarter: 2007Q2

REPORT INFORMATION
  Report Type: 
  Country: None (occurrence: None)
  Receive Date: 20070622
  Receipt Date: 20070611
  Transmission Date: 20071010
  Serious: Yes (Other)
  Sender: FDA-Public Use
  Company Number: US-PFIZER INC-2007047840

PATIENT

DRUGS (1)
  1. CHANTIX [Suspect]

REACTIONS (3)
  - BALANCE DISORDER [None]
  - MULTIPLE SCLEROSIS [None]
  - URINARY INCONTINENCE [None]
